FAERS Safety Report 4775490-5 (Version None)
Quarter: 2005Q3

REPORT INFORMATION
  Report Type: 
  Country: None (occurrence: None)
  Receive Date: 20050920
  Receipt Date: 20050907
  Transmission Date: 20060218
  Serious: Yes (Other)
  Sender: FDA-Public Use
  Company Number: 2005125082

PATIENT
  Age: 72 Year
  Sex: Male
  Weight: 97.5234 kg

DRUGS (2)
  1. BEXTRA [Suspect]
     Indication: ARTHRITIS
     Dosage: 20 MG (20 MG, 1 IN 1 D),
     Dates: end: 20050401
  2. DRUG (DRUG,) [Concomitant]

REACTIONS (4)
  - PURPURA [None]
  - RASH GENERALISED [None]
  - RASH PRURITIC [None]
  - RASH PUSTULAR [None]
